FAERS Safety Report 7908921-X (Version None)
Quarter: 2011Q4

REPORT INFORMATION
  Report Type: 
  Country: None (occurrence: None)
  Receive Date: 20111111
  Receipt Date: 20111107
  Transmission Date: 20120403
  Serious: Yes (Other)
  Sender: FDA-Public Use
  Company Number: US-BRISTOL-MYERS SQUIBB COMPANY-16220808

PATIENT
  Sex: Female

DRUGS (2)
  1. YERVOY [Suspect]
  2. STEROIDS [Concomitant]

REACTIONS (1)
  - GRANULOMA [None]
